FAERS Safety Report 8305729-0 (Version None)
Quarter: 2012Q2

REPORT INFORMATION
  Report Type: 
  Country: None (occurrence: None)
  Receive Date: 20120423
  Receipt Date: 20120412
  Transmission Date: 20120825
  Serious: Yes (Other)
  Sender: FDA-Public Use
  Company Number: CA-JNJFOC-20120406251

PATIENT
  Sex: Female
  Weight: 60 kg

DRUGS (7)
  1. HYDROXYCHLOROQUINE SULFATE [Concomitant]
     Route: 065
  2. FLOVENT [Concomitant]
     Route: 065
  3. METHOTREXATE [Concomitant]
     Route: 065
  4. AMITRIPTYLINE HCL [Concomitant]
     Route: 065
  5. REMICADE [Suspect]
     Route: 042
     Dates: start: 20051001
  6. REMICADE [Suspect]
     Indication: RHEUMATOID ARTHRITIS
     Dosage: 106TH INFUSION
     Route: 042
     Dates: start: 20120412
  7. VENTOLIN [Concomitant]
     Route: 065

REACTIONS (1)
  - RIB FRACTURE [None]
